FAERS Safety Report 10512769 (Version 2)
Quarter: 2014Q4

REPORT INFORMATION
  Report Type: Spontaneous
  Country: JP (occurrence: JP)
  Receive Date: 20141013
  Receipt Date: 20141031
  Transmission Date: 20150528
  Serious: Yes (Other)
  Sender: FDA-Public Use
  Company Number: JP-ROCHE-1473391

PATIENT
  Age: 63 Year
  Sex: Female

DRUGS (1)
  1. BONVIVA [Suspect]
     Active Substance: IBANDRONATE SODIUM
     Indication: OSTEOPOROSIS
     Route: 042

REACTIONS (1)
  - Myalgia [Recovered/Resolved]
